FAERS Safety Report 24967753 (Version 2)
Quarter: 2025Q1

REPORT INFORMATION
  Report Type: Spontaneous
  Country: US (occurrence: US)
  Receive Date: 20250214
  Receipt Date: 20250219
  Transmission Date: 20250409
  Serious: No
  Sender: ROCHE
  Company Number: US-ROCHE-10000202872

PATIENT
  Weight: 60.78 kg

DRUGS (1)
  1. KADCYLA [Suspect]
     Active Substance: ADO-TRASTUZUMAB EMTANSINE
     Indication: Breast cancer
     Route: 065

REACTIONS (12)
  - Pollakiuria [Unknown]
  - Blood potassium decreased [Unknown]
  - Hepatic enzyme increased [Unknown]
  - Fatigue [Unknown]
  - Neoplasm [Unknown]
  - Inflammation [Unknown]
  - Skin exfoliation [Unknown]
  - Pollakiuria [Unknown]
  - Pallor [Unknown]
  - Scab [Unknown]
  - Blood pressure decreased [Unknown]
  - Dry eye [Unknown]
